FAERS Safety Report 6096986-2 (Version None)
Quarter: 2009Q1

REPORT INFORMATION
  Report Type: 
  Country: None (occurrence: None)
  Receive Date: 20090227
  Receipt Date: 20090211
  Transmission Date: 20090719
  Serious: Yes (Other)
  Sender: FDA-Public Use
  Company Number: PHBS2009KR00805

PATIENT
  Age: 57 Year
  Sex: Female

DRUGS (6)
  1. CYCLOSPORINE [Suspect]
     Indication: RENAL TRANSPLANT
     Dosage: UNK
  2. MYCOPHENOLATE SODIUM [Suspect]
     Indication: RENAL TRANSPLANT
     Dosage: UNK
  3. PREDNISOLONE [Suspect]
     Indication: RENAL TRANSPLANT
     Dosage: UNK
  4. BASILIXIMAB [Concomitant]
     Indication: RENAL TRANSPLANT
     Dosage: UNK
  5. METHYLPREDNISOLONE 4MG TAB [Concomitant]
     Indication: RENAL TRANSPLANT
     Dosage: UNK
  6. METHYLPREDNISOLONE 4MG TAB [Concomitant]
     Dosage: 750 MG PULSE

REACTIONS (11)
  - FUNGUS CULTURE POSITIVE [None]
  - INFLAMMATION [None]
  - KIDNEY TRANSPLANT REJECTION [None]
  - LOCAL SWELLING [None]
  - MASS [None]
  - NOCARDIOSIS [None]
  - PURULENCE [None]
  - RASH ERYTHEMATOUS [None]
  - SKIN LESION [None]
  - SUTURE INSERTION [None]
  - WOUND [None]
